FAERS Safety Report 5890495-9 (Version None)
Quarter: 2008Q3

REPORT INFORMATION
  Report Type: 
  Country: None (occurrence: None)
  Receive Date: 20080918
  Receipt Date: 20080902
  Transmission Date: 20090109
  Serious: Yes (Other)
  Sender: FDA-Public Use
  Company Number: DSJ-2008-10865

PATIENT
  Age: 74 Year
  Sex: Male
  Weight: 63.5 kg

DRUGS (3)
  1. OLMETEC (OLMESARTAN MEDOXOMIL) (TABLET) (OLMESARTAN [Suspect]
     Indication: ESSENTIAL HYPERTENSION
     Dosage: 10 MG (10 MG, 1 IN 1 D) ,PER ORAL
     Route: 048
     Dates: start: 20060524
  2. MICARDIS [Concomitant]
  3. NORVASC [Concomitant]

REACTIONS (1)
  - BLOOD UREA INCREASED [None]
